FAERS Safety Report 14845038 (Version 4)
Quarter: 2018Q4

REPORT INFORMATION
  Report Type: Spontaneous
  Country: US (occurrence: US)
  Receive Date: 20180504
  Receipt Date: 20181029
  Transmission Date: 20190204
  Serious: Yes (Life-Threatening, Disabling)
  Sender: FDA-Public Use
  Company Number: US-CELGENEUS-USA-20180500403

PATIENT
  Age: 78 Year
  Sex: Female
  Weight: 53.12 kg

DRUGS (2)
  1. OTEZLA [Suspect]
     Active Substance: APREMILAST
     Indication: PSORIASIS
     Dosage: 60 MILLIGRAM
     Route: 048
     Dates: start: 20180126
  2. OTEZLA [Suspect]
     Active Substance: APREMILAST
     Dosage: 60 MILLIGRAM
     Route: 048
     Dates: start: 201802

REACTIONS (13)
  - Increased viscosity of upper respiratory secretion [Recovered/Resolved]
  - Arthralgia [Not Recovered/Not Resolved]
  - Bile acid malabsorption [Unknown]
  - Weight decreased [Recovering/Resolving]
  - Nausea [Recovered/Resolved]
  - Eating disorder [Recovered/Resolved]
  - Lethargy [Unknown]
  - Blood pressure decreased [Recovered/Resolved]
  - Chills [Unknown]
  - Dysgeusia [Recovered/Resolved]
  - Depression [Unknown]
  - Decreased appetite [Not Recovered/Not Resolved]
  - Headache [Recovered/Resolved]

NARRATIVE: CASE EVENT DATE: 2018
